FAERS Safety Report 20816007 (Version 2)
Quarter: 2022Q2

REPORT INFORMATION
  Report Type: Spontaneous
  Country: IT (occurrence: IT)
  Receive Date: 20220511
  Receipt Date: 20220517
  Transmission Date: 20220721
  Serious: Yes (Other)
  Sender: FDA-Public Use
  Company Number: None

PATIENT
  Age: 45 Year
  Sex: Male

DRUGS (1)
  1. VEKLURY [Suspect]
     Active Substance: REMDESIVIR
     Indication: Coronavirus infection
     Route: 042
     Dates: start: 20220406, end: 20220407

REACTIONS (1)
  - Bradycardia [Recovered/Resolved]

NARRATIVE: CASE EVENT DATE: 20220406
